FAERS Safety Report 5474035-4 (Version None)
Quarter: 2007Q4

REPORT INFORMATION
  Report Type: 
  Country: None (occurrence: None)
  Receive Date: 20071002
  Receipt Date: 20070918
  Transmission Date: 20080405
  Serious: Yes (Hospitalization, Other)
  Sender: FDA-Public Use
  Company Number: PHFR2007GB02408

PATIENT
  Age: 43 Year
  Sex: Female

DRUGS (4)
  1. CLOZARIL [Suspect]
     Indication: SCHIZOPHRENIA
     Dosage: 375MG/DAY
     Route: 048
     Dates: start: 20070205, end: 20070728
  2. VENLAFAXINE HCL [Concomitant]
     Indication: DEPRESSION
     Dosage: 150MG/DAY
     Route: 048
     Dates: start: 20070201
  3. HALOPERIDOL [Concomitant]
     Indication: ANXIETY
     Dosage: 0.5-1MG/DAY PRN
     Route: 048
     Dates: start: 20070201
  4. LEVOTHYROXINE SODIUM [Concomitant]
     Indication: HYPOTHYROIDISM
     Dosage: 175MCG
     Route: 048
     Dates: start: 20050101

REACTIONS (9)
  - CONVULSIVE THRESHOLD LOWERED [None]
  - COUGH [None]
  - DYSARTHRIA [None]
  - DYSPHEMIA [None]
  - DYSPNOEA [None]
  - LUNG ADENOCARCINOMA [None]
  - LUNG LOBECTOMY [None]
  - MUSCLE TWITCHING [None]
  - WEIGHT INCREASED [None]
